FAERS Safety Report 7485584-1 (Version None)
Quarter: 2011Q2

REPORT INFORMATION
  Report Type: 
  Country: None (occurrence: None)
  Receive Date: 20110509
  Receipt Date: 20110426
  Transmission Date: 20111010
  Serious: Yes (Hospitalization, Other)
  Sender: FDA-Public Use
  Company Number: 2011SP019232

PATIENT
  Age: 20 Year
  Sex: Male

DRUGS (1)
  1. SAPHRIS [Suspect]
     Indication: PSYCHOTIC DISORDER
     Dosage: 10 MG;BID;SL
     Route: 060
     Dates: start: 20110101

REACTIONS (1)
  - CONVULSION [None]
